FAERS Safety Report 9592218 (Version 2)
Quarter: 2013Q4

REPORT INFORMATION
  Report Type: Spontaneous
  Country: US (occurrence: US)
  Receive Date: 20131004
  Receipt Date: 20131114
  Transmission Date: 20140711
  Serious: Yes (Hospitalization, Other)
  Sender: FDA-Public Use
  Company Number: US-ASTRAZENECA-2013SE72196

PATIENT
  Age: 75 Year
  Sex: Female
  Weight: 73.5 kg

DRUGS (12)
  1. SYMBICORT [Suspect]
     Indication: CHRONIC OBSTRUCTIVE PULMONARY DISEASE
     Dosage: 320 MCG TWO TIMES A DAY
     Route: 055
  2. SYMBICORT [Suspect]
     Indication: CHRONIC OBSTRUCTIVE PULMONARY DISEASE
     Dosage: 160/4.5 MCG TWO PUFFS  TWO TIMES A DAY
     Route: 055
  3. OMEPRAZOLE [Suspect]
     Dosage: DAILY
     Route: 048
  4. FENOFIBRATE [Concomitant]
     Indication: BLOOD CHOLESTEROL ABNORMAL
     Route: 048
  5. WARFARIN [Concomitant]
     Indication: CARDIAC DISORDER
     Route: 048
  6. LEVOTHYROXINE [Concomitant]
     Indication: THYROID DISORDER
     Route: 048
  7. ALDACTONE [Concomitant]
     Route: 048
  8. LASIX [Concomitant]
     Route: 048
  9. KOL-CON [Concomitant]
     Indication: MINERAL SUPPLEMENTATION
     Route: 048
  10. AMIODARONE HCL [Concomitant]
     Route: 048
  11. IPRAPROPIUM BROMIDE [Concomitant]
     Indication: INHALATION THERAPY
     Route: 055
  12. VITAMINS [Concomitant]
     Dosage: DAILY
     Route: 048

REACTIONS (9)
  - Cataract [Unknown]
  - Thrombosis [Unknown]
  - Lung neoplasm malignant [Unknown]
  - Visual impairment [Unknown]
  - Mental impairment [Unknown]
  - Memory impairment [Unknown]
  - Blood cholesterol abnormal [Unknown]
  - Hypoaesthesia [Unknown]
  - Drug dose omission [Unknown]
